FAERS Safety Report 5295271-6 (Version None)
Quarter: 2007Q2

REPORT INFORMATION
  Report Type: 
  Country: None (occurrence: None)
  Receive Date: 20070412
  Receipt Date: 20070405
  Transmission Date: 20071010
  Serious: Yes (Hospitalization, Other)
  Sender: FDA-Public Use
  Company Number: US-ELI_LILLY_AND_COMPANY-US200702004603

PATIENT
  Age: 39 Year
  Sex: Female
  Weight: 47.619 kg

DRUGS (5)
  1. CYMBALTA [Suspect]
     Indication: DEPRESSION
     Dosage: 60 MG, DAILY (1/D)
     Route: 048
     Dates: start: 20051006, end: 20070213
  2. MOTRIN [Concomitant]
     Indication: PAIN
     Dosage: 600 MG, 3/D
     Route: 048
  3. ULTRACET [Concomitant]
     Indication: PAIN
     Dosage: 75 MG, AS NEEDED
  4. LORTAB [Concomitant]
     Indication: PAIN
     Dosage: UNK, AS NEEDED
  5. VANCOMYCIN [Concomitant]

REACTIONS (4)
  - GAIT DISTURBANCE [None]
  - HEPATIC FAILURE [None]
  - RENAL IMPAIRMENT [None]
  - THERAPEUTIC AGENT TOXICITY [None]
